FAERS Safety Report 8748700 (Version 3)
Quarter: 2012Q4

REPORT INFORMATION
  Report Type: 
  Country: BR (occurrence: BR)
  Receive Date: 20120827
  Receipt Date: 20121101
  Transmission Date: 20130627
  Serious: Yes (Hospitalization, Other)
  Sender: FDA-Public Use
  Company Number: BR-ROCHE-1107686

PATIENT
  Age: 53 Year
  Sex: Male
  Weight: 82 kg

DRUGS (1)
  1. MABTHERA [Suspect]
     Indication: NON-HODGKIN^S LYMPHOMA STAGE III
     Route: 042
     Dates: start: 201001, end: 201202

REACTIONS (5)
  - Disseminated tuberculosis [Not Recovered/Not Resolved]
  - Lymphadenopathy [Unknown]
  - Hyperhidrosis [Unknown]
  - Weight decreased [Unknown]
  - Thrombocytopenia [Recovering/Resolving]
